FAERS Safety Report 5916126-7 (Version None)
Quarter: 2008Q4

REPORT INFORMATION
  Report Type: 
  Country: None (occurrence: None)
  Receive Date: 20081009
  Receipt Date: 20081009
  Transmission Date: 20090506
  Serious: Yes (Other)
  Sender: FDA-Public Use
  Company Number: None

PATIENT
  Sex: Female
  Weight: 106.5953 kg

DRUGS (1)
  1. LEVOTHYROXINE SODIUM [Suspect]
     Dosage: 150 MCG/DAILY
     Dates: start: 20080605

REACTIONS (2)
  - BLOOD THYROID STIMULATING HORMONE DECREASED [None]
  - PRODUCT QUALITY ISSUE [None]
